FAERS Safety Report 18395129 (Version 1)
Quarter: 2020Q4

REPORT INFORMATION
  Report Type: Report from Study
  Country: None (occurrence: US)
  Receive Date: 20201016
  Receipt Date: 20201016
  Transmission Date: 20210114
  Serious: Yes (Other)
  Sender: FDA-Public Use
  Company Number: US-ABBVIE-20K-163-3599662-00

PATIENT
  Sex: Female

DRUGS (1)
  1. HUMIRA [Suspect]
     Active Substance: ADALIMUMAB
     Indication: RHEUMATOID ARTHRITIS
     Dosage: CF
     Route: 058

REACTIONS (7)
  - Clostridium difficile infection [Recovering/Resolving]
  - Procedural pain [Unknown]
  - Feeling cold [Unknown]
  - Postoperative abscess [Recovered/Resolved with Sequelae]
  - Skin lesion [Not Recovered/Not Resolved]
  - Seizure [Recovered/Resolved]
  - Post procedural infection [Recovered/Resolved with Sequelae]

NARRATIVE: CASE EVENT DATE: 2020
